FAERS Safety Report 19077228 (Version 1)
Quarter: 2021Q1

REPORT INFORMATION
  Report Type: Spontaneous
  Country: CO (occurrence: CO)
  Receive Date: 20210331
  Receipt Date: 20210331
  Transmission Date: 20210420
  Serious: No
  Sender: FDA-Public Use
  Company Number: CO-PFIZER INC-2021323983

PATIENT
  Age: 13 Year
  Sex: Male

DRUGS (1)
  1. GENOTROPIN [Suspect]
     Active Substance: SOMATROPIN
     Indication: GROWTH HORMONE DEFICIENCY
     Dosage: 1.6 MG
     Route: 058
     Dates: start: 20210312

REACTIONS (4)
  - Accidental exposure to product [Unknown]
  - Device mechanical issue [Unknown]
  - Exposure via skin contact [Unknown]
  - Device leakage [Unknown]

NARRATIVE: CASE EVENT DATE: 20210320
